FAERS Safety Report 15746938 (Version 4)
Quarter: 2019Q3

REPORT INFORMATION
  Report Type: Spontaneous
  Country: JP (occurrence: JP)
  Receive Date: 20181220
  Receipt Date: 20190904
  Transmission Date: 20191004
  Serious: Yes (Death, Hospitalization)
  Sender: FDA-Public Use
  Company Number: PHJP2018JP021061

PATIENT
  Age: 74 Year
  Sex: Female

DRUGS (3)
  1. NIVOLUMAB [Suspect]
     Active Substance: NIVOLUMAB
     Indication: RENAL CANCER METASTATIC
     Dosage: UNK
     Route: 065
     Dates: start: 201709
  2. PREDNISOLONE. [Concomitant]
     Active Substance: PREDNISOLONE
     Indication: AUTOIMMUNE HEPATITIS
     Dosage: 40 MG, UNK
     Route: 065
  3. VOTRIENT [Suspect]
     Active Substance: PAZOPANIB HYDROCHLORIDE
     Indication: RENAL CANCER METASTATIC
     Dosage: UNK
     Route: 048
     Dates: start: 201810

REACTIONS (7)
  - Pancreatic enlargement [Fatal]
  - Fluid retention [Fatal]
  - Abdominal pain [Fatal]
  - Respiratory failure [Fatal]
  - Pancreatitis acute [Fatal]
  - Electrolyte imbalance [Fatal]
  - Immune-mediated hepatitis [Fatal]

NARRATIVE: CASE EVENT DATE: 201812
